FAERS Safety Report 9737535 (Version 1)
Quarter: 2013Q4

REPORT INFORMATION
  Report Type: Spontaneous
  Country: NL (occurrence: NL)
  Receive Date: 20131207
  Receipt Date: 20131207
  Transmission Date: 20140711
  Serious: Yes (Life-Threatening)
  Sender: FDA-Public Use
  Company Number: NL-ACCORD-020629

PATIENT
  Age: 40 Year
  Sex: Female

DRUGS (1)
  1. NALTREXONE [Suspect]
     Indication: ALCOHOLISM
     Dosage: 50 MG: 1 TIME PER DAY 0.5 PIECE(S) AND AFTER 1WK 1DD1
     Dates: start: 20130727, end: 20130803

REACTIONS (1)
  - Angioedema [Recovered/Resolved]
